FAERS Safety Report 5317067-9 (Version None)
Quarter: 2007Q2

REPORT INFORMATION
  Report Type: 
  Country: None (occurrence: None)
  Receive Date: 20070504
  Receipt Date: 20070501
  Transmission Date: 20071010
  Serious: No
  Sender: FDA-Public Use
  Company Number: US-ASTRAZENECA-2007UW09297

PATIENT
  Age: 20 Year
  Sex: Female
  Weight: 47.6 kg

DRUGS (7)
  1. SEROQUEL [Suspect]
     Indication: AFFECTIVE DISORDER
     Route: 048
  2. SEROQUEL [Suspect]
     Route: 048
     Dates: start: 20060701
  3. LAMICTAL [Concomitant]
  4. REMERON [Concomitant]
  5. CYMBALTA [Concomitant]
  6. PREVACID [Concomitant]
  7. ASTHMA NEC [Concomitant]

REACTIONS (3)
  - EATING DISORDER [None]
  - WEIGHT DECREASED [None]
  - WHITE BLOOD CELL COUNT DECREASED [None]
